FAERS Safety Report 8514263-4 (Version None)
Quarter: 2012Q3

REPORT INFORMATION
  Report Type: 
  Country: None (occurrence: None)
  Receive Date: 20120717
  Receipt Date: 20120709
  Transmission Date: 20120928
  Serious: Yes (Other)
  Sender: FDA-Public Use
  Company Number: CA-PFIZER INC-2012168927

PATIENT
  Sex: Male

DRUGS (6)
  1. MORPHINE SULFATE (AVINZA ER) [Suspect]
     Route: 065
  2. EFFEXOR [Suspect]
     Route: 065
  3. DILAUDID [Suspect]
     Route: 065
  4. RITALIN [Suspect]
     Route: 065
  5. MARIJUANA [Suspect]
     Route: 065
  6. EFFEXOR [Suspect]
     Route: 042

REACTIONS (4)
  - AGGRESSION [None]
  - SUBSTANCE ABUSE [None]
  - SEXUALLY INAPPROPRIATE BEHAVIOUR [None]
  - EUPHORIC MOOD [None]
